FAERS Safety Report 6720512-5 (Version None)
Quarter: 2010Q2

REPORT INFORMATION
  Report Type: 
  Country: None (occurrence: None)
  Receive Date: 20100511
  Receipt Date: 20100503
  Transmission Date: 20101027
  Serious: Yes (Other)
  Sender: FDA-Public Use
  Company Number: US-AMGEN-KDL410061

PATIENT
  Sex: Female

DRUGS (3)
  1. ENBREL [Suspect]
     Indication: PSORIASIS
     Dates: start: 20080101, end: 20100201
  2. ANTIHYPERTENSIVES [Concomitant]
  3. UNSPECIFIED THYROID MEDICATION [Concomitant]

REACTIONS (1)
  - HISTOPLASMOSIS [None]
